FAERS Safety Report 12587870 (Version 3)
Quarter: 2016Q3

REPORT INFORMATION
  Report Type: Spontaneous
  Country: US (occurrence: US)
  Receive Date: 20160725
  Receipt Date: 20160826
  Transmission Date: 20161109
  Serious: No
  Sender: FDA-Public Use
  Company Number: US-GLAXOSMITHKLINE-US2016106812

PATIENT
  Sex: Female

DRUGS (1)
  1. FLOVENT DISKUS [Suspect]
     Active Substance: FLUTICASONE PROPIONATE
     Indication: PRODUCT USED FOR UNKNOWN INDICATION
     Dosage: 1 PUFF(S), BID
     Route: 055
     Dates: start: 20160719

REACTIONS (6)
  - Nasal discomfort [Unknown]
  - Erythema [Unknown]
  - Malaise [Unknown]
  - Respiratory tract irritation [Unknown]
  - Product quality issue [Unknown]
  - Oral discomfort [Not Recovered/Not Resolved]
